FAERS Safety Report 14154807 (Version 1)
Quarter: 2017Q4

REPORT INFORMATION
  Report Type: Spontaneous
  Country: US (occurrence: US)
  Receive Date: 20171102
  Receipt Date: 20171102
  Transmission Date: 20180321
  Serious: Yes (Other)
  Sender: FDA-Public Use
  Company Number: US-SUNOVION-2017SUN004729

PATIENT
  Age: 37 Year
  Sex: Female
  Weight: 90 kg

DRUGS (9)
  1. ONFI [Suspect]
     Active Substance: CLOBAZAM
     Dosage: 20 UNK, UNK
     Route: 048
  2. LEVETIRACETAM. [Concomitant]
     Active Substance: LEVETIRACETAM
  3. ONFI [Suspect]
     Active Substance: CLOBAZAM
     Indication: PRODUCT USED FOR UNKNOWN INDICATION
     Dosage: 20 MG, UNK
     Route: 048
     Dates: start: 2014
  4. OXCARBAZEPINE. [Concomitant]
     Active Substance: OXCARBAZEPINE
  5. PERAMPANEL [Suspect]
     Active Substance: PERAMPANEL
     Indication: PRODUCT USED FOR UNKNOWN INDICATION
     Dosage: UNK
     Dates: end: 20140906
  6. APTIOM [Suspect]
     Active Substance: ESLICARBAZEPINE ACETATE
     Indication: PRODUCT USED FOR UNKNOWN INDICATION
     Dosage: UNK
     Route: 048
     Dates: end: 201708
  7. CLONAZEPAM. [Concomitant]
     Active Substance: CLONAZEPAM
  8. ZONISAMIDE. [Suspect]
     Active Substance: ZONISAMIDE
     Indication: PRODUCT USED FOR UNKNOWN INDICATION
     Route: 065
  9. BRIVARACETAM [Suspect]
     Active Substance: BRIVARACETAM
     Indication: PRODUCT USED FOR UNKNOWN INDICATION
     Dosage: UNK
     Dates: end: 201703

REACTIONS (11)
  - Family stress [Unknown]
  - Self-injurious ideation [Unknown]
  - Aphasia [Unknown]
  - Brain operation [Unknown]
  - Suicidal ideation [Recovered/Resolved]
  - Hemiparesis [Unknown]
  - Seizure [Recovering/Resolving]
  - Mood altered [Not Recovered/Not Resolved]
  - Depression [Unknown]
  - Hallucination [Unknown]
  - Condition aggravated [Recovering/Resolving]

NARRATIVE: CASE EVENT DATE: 2014
